FAERS Safety Report 4640594-4 (Version None)
Quarter: 2005Q2

REPORT INFORMATION
  Report Type: 
  Country: None (occurrence: None)
  Receive Date: 20050419
  Receipt Date: 20050407
  Transmission Date: 20051028
  Serious: Yes (Death, Hospitalization)
  Sender: FDA-Public Use
  Company Number: 213683

PATIENT
  Age: 63 Year
  Sex: Male

DRUGS (6)
  1. MABTHERA (RITUXIMAB) CONC FOR INFUSION [Suspect]
     Indication: CHRONIC LYMPHOCYTIC LEUKAEMIA
     Dosage: 700 MG, INTRAVENOUS
     Route: 042
     Dates: start: 20030115, end: 20030205
  2. SOLU-MEDROL [Suspect]
     Dosage: 140 MG, INTRAVENOUS
     Route: 042
     Dates: start: 20030127, end: 20030130
  3. DOXORUBICIN HYDROCHLORIDE [Suspect]
  4. CYCLOPHOSPHAMIDE [Suspect]
     Dates: start: 20030114
  5. ONCOVIN [Suspect]
  6. FLUDARABINE PHOSPHATE [Concomitant]

REACTIONS (8)
  - ACUTE RESPIRATORY DISTRESS SYNDROME [None]
  - AGRANULOCYTOSIS [None]
  - HYPOXIA [None]
  - LUNG DISORDER [None]
  - PLATELET COUNT ABNORMAL [None]
  - PYREXIA [None]
  - RENAL FAILURE ACUTE [None]
  - TUMOUR LYSIS SYNDROME [None]
